APPROVED DRUG PRODUCT: BUPRENORPHINE HYDROCHLORIDE
Active Ingredient: BUPRENORPHINE HYDROCHLORIDE
Strength: EQ 0.3MG BASE/ML
Dosage Form/Route: INJECTABLE;INJECTION
Application: A219302 | Product #001 | TE Code: AP
Applicant: SOMERSET THERAPEUTICS LLC
Approved: Jan 30, 2025 | RLD: No | RS: No | Type: RX